FAERS Safety Report 9803465 (Version 5)
Quarter: 2023Q4

REPORT INFORMATION
  Report Type: Other
  Country: ES (occurrence: None)
  Receive Date: 20140108
  Receipt Date: 20231027
  Transmission Date: 20240109
  Serious: Yes (Death, Other)
  Sender: FDA-Public Use
  Company Number: ES-ROCHE-1329388

PATIENT

DRUGS (15)
  1. RITUXIMAB [Suspect]
     Active Substance: RITUXIMAB
     Indication: Diffuse large B-cell lymphoma
     Dosage: ON DAY 1
     Route: 042
  2. RITUXIMAB [Suspect]
     Active Substance: RITUXIMAB
     Indication: Burkitt^s lymphoma
  3. ETOPOSIDE [Suspect]
     Active Substance: ETOPOSIDE
     Indication: Diffuse large B-cell lymphoma
     Dosage: DAYS 1-4, 21 DAYS CYCLE.
     Route: 065
  4. ETOPOSIDE [Suspect]
     Active Substance: ETOPOSIDE
     Indication: Burkitt^s lymphoma
  5. CISPLATIN [Suspect]
     Active Substance: CISPLATIN
     Indication: Diffuse large B-cell lymphoma
     Dosage: DAYS 1-4, 21 DAYS CYCLE
     Route: 065
  6. CISPLATIN [Suspect]
     Active Substance: CISPLATIN
     Indication: Burkitt^s lymphoma
  7. CYTARABINE [Suspect]
     Active Substance: CYTARABINE
     Indication: Diffuse large B-cell lymphoma
     Dosage: DAY 5, 21 DAYS CYCLE
     Route: 065
  8. CYTARABINE [Suspect]
     Active Substance: CYTARABINE
     Indication: Burkitt^s lymphoma
  9. METHYLPREDNISOLONE [Suspect]
     Active Substance: METHYLPREDNISOLONE
     Indication: Diffuse large B-cell lymphoma
     Dosage: DAYS 1-5, 21 DAYS CYCLE
     Route: 065
  10. METHYLPREDNISOLONE [Suspect]
     Active Substance: METHYLPREDNISOLONE
     Indication: Burkitt^s lymphoma
  11. LENALIDOMIDE [Suspect]
     Active Substance: LENALIDOMIDE
     Indication: Diffuse large B-cell lymphoma
     Dosage: 1 TO 14 OF EVERY 21-DAY CYCLE
     Route: 065
  12. LENALIDOMIDE [Suspect]
     Active Substance: LENALIDOMIDE
     Indication: Burkitt^s lymphoma
     Dosage: 1 TO 14 OF EVERY 21-DAY CYCLE
     Route: 065
  13. LENALIDOMIDE [Suspect]
     Active Substance: LENALIDOMIDE
     Dosage: 1 TO 14 OF EVERY 21-DAY CYCLE
     Route: 065
  14. FILGRASTIM [Concomitant]
     Active Substance: FILGRASTIM
     Dosage: MORE THAN OR EQUAL TO 5 UG/KG/DAY FROM DAY 6 ONWARDS
  15. PEGFILGRASTIM [Concomitant]
     Active Substance: PEGFILGRASTIM
     Dosage: ON DAY 6 ONWARDS

REACTIONS (33)
  - Hepatotoxicity [Recovered/Resolved]
  - Device related infection [Recovered/Resolved]
  - Sepsis [Recovered/Resolved]
  - Infection [Unknown]
  - Renal disorder [Unknown]
  - Cardiac disorder [Unknown]
  - Thrombosis [Unknown]
  - Adenocarcinoma of colon [Unknown]
  - Pneumonia [Fatal]
  - Decreased appetite [Unknown]
  - Asthenia [Unknown]
  - Abdominal pain [Unknown]
  - Anaemia [Unknown]
  - Diarrhoea [Unknown]
  - Fatigue [Unknown]
  - Hyperglycaemia [Unknown]
  - Hypokalaemia [Unknown]
  - Leukocytosis [Unknown]
  - Leukopenia [Unknown]
  - Lymphopenia [Unknown]
  - Respiratory tract infection [Unknown]
  - Thrombocytopenia [Unknown]
  - Pulmonary embolism [Unknown]
  - Headache [Unknown]
  - Paraesthesia [Unknown]
  - Hypotension [Unknown]
  - Vomiting [Unknown]
  - Hypertension [Unknown]
  - Constipation [Unknown]
  - Nausea [Unknown]
  - Pyrexia [Unknown]
  - Oedema [Unknown]
  - Mastoiditis [Unknown]

NARRATIVE: CASE EVENT DATE: 20130619
